FAERS Safety Report 7319813-1 (Version None)
Quarter: 2011Q1

REPORT INFORMATION
  Report Type: 
  Country: None (occurrence: None)
  Receive Date: 20110228
  Receipt Date: 20101006
  Transmission Date: 20110831
  Serious: No
  Sender: FDA-Public Use
  Company Number: A0885219A

PATIENT
  Age: 48 Year
  Sex: Male

DRUGS (6)
  1. LISINOPRIL [Concomitant]
  2. METFORMIN [Concomitant]
  3. DIAZEPAM [Concomitant]
  4. LAMICTAL [Suspect]
     Indication: BIPOLAR DISORDER
     Dosage: 100MG PER DAY
     Route: 048
     Dates: start: 20101003
  5. ACIPHEX [Concomitant]
  6. ENBREL [Concomitant]

REACTIONS (1)
  - ERECTILE DYSFUNCTION [None]
